FAERS Safety Report 6807715-6 (Version None)
Quarter: 2010Q2

REPORT INFORMATION
  Report Type: 
  Country: None (occurrence: None)
  Receive Date: 20100629
  Receipt Date: 20081210
  Transmission Date: 20101027
  Serious: No
  Sender: FDA-Public Use
  Company Number: US-PFIZER INC-2008089950

PATIENT
  Sex: Male
  Weight: 109 kg

DRUGS (6)
  1. VIAGRA [Suspect]
     Dates: start: 20080819
  2. VALSARTAN [Concomitant]
     Indication: HYPERTENSION
  3. LOVASTATIN [Concomitant]
     Indication: BLOOD CHOLESTEROL INCREASED
  4. LUMIGAN [Concomitant]
     Indication: GLAUCOMA
  5. FISH OIL [Concomitant]
  6. VITAMINS [Concomitant]

REACTIONS (3)
  - DRUG INEFFECTIVE [None]
  - MALE ORGASMIC DISORDER [None]
  - VISION BLURRED [None]
